FAERS Safety Report 5195646-X (Version None)
Quarter: 2007Q1

REPORT INFORMATION
  Report Type: 
  Country: None (occurrence: None)
  Receive Date: 20070102
  Receipt Date: 20061220
  Transmission Date: 20070707
  Serious: Yes (Hospitalization)
  Sender: FDA-Public Use
  Company Number: PHBS2006JP19864

PATIENT
  Age: 83 Year
  Sex: Male

DRUGS (1)
  1. CYCLOSPORINE [Suspect]
     Indication: DRUG ERUPTION

REACTIONS (2)
  - ERYTHEMA MULTIFORME [None]
  - RENAL IMPAIRMENT [None]
